FAERS Safety Report 17760364 (Version 7)
Quarter: 2020Q4

REPORT INFORMATION
  Report Type: Spontaneous
  Country: US (occurrence: US)
  Receive Date: 20200508
  Receipt Date: 20201019
  Transmission Date: 20210113
  Serious: Yes (Hospitalization)
  Sender: FDA-Public Use
  Company Number: US-VERTEX PHARMACEUTICALS-2020-001124

PATIENT
  Age: 74 Year
  Sex: Female

DRUGS (27)
  1. BUPROPION. [Concomitant]
     Active Substance: BUPROPION
  2. PEG [PREGABALIN] [Concomitant]
  3. NOVOLOG [Concomitant]
     Active Substance: INSULIN ASPART
  4. PREDNISONE. [Concomitant]
     Active Substance: PREDNISONE
  5. COMBIVENT [Concomitant]
     Active Substance: ALBUTEROL SULFATE\IPRATROPIUM BROMIDE
  6. VITAMIN B12 [Concomitant]
     Active Substance: CYANOCOBALAMIN
  7. PAROXETINE. [Concomitant]
     Active Substance: PAROXETINE
  8. SODIUM CHLORIDE. [Concomitant]
     Active Substance: SODIUM CHLORIDE
  9. NYSTATIN. [Concomitant]
     Active Substance: NYSTATIN
  10. HYDROCHLOROTHIAZIDE. [Concomitant]
     Active Substance: HYDROCHLOROTHIAZIDE
  11. TRIKAFTA [Suspect]
     Active Substance: ELEXACAFTOR\IVACAFTOR\TEZACAFTOR
     Indication: CYSTIC FIBROSIS
     Dosage: 100MG ELEXACAFTOR/50MG TEZACAFTOR/75MG IVACAFTOR PM AND 150 MG IVACAFTOR AM
     Route: 048
     Dates: start: 20191214, end: 2020
  12. TRIKAFTA [Suspect]
     Active Substance: ELEXACAFTOR\IVACAFTOR\TEZACAFTOR
     Dosage: 2 TABS (100 MG ELEXACAFTOR/50 MG TEZACAFTOR/75 MG IVACAFTOR) AM AND 1 TAB (150 MG IVACAFTOR) PM
     Route: 048
     Dates: start: 20200521
  13. BUSPIRONE [Concomitant]
     Active Substance: BUSPIRONE HYDROCHLORIDE
  14. MONTELUKAST [Concomitant]
     Active Substance: MONTELUKAST SODIUM
  15. CLONAZEPAM. [Concomitant]
     Active Substance: CLONAZEPAM
  16. SINUS RINSE [Concomitant]
     Active Substance: SODIUM BICARBONATE\SODIUM CHLORIDE
  17. TRIKAFTA [Suspect]
     Active Substance: ELEXACAFTOR\IVACAFTOR\TEZACAFTOR
     Dosage: AM DOSE IN PM AND PM DOSE IN AM
     Route: 048
     Dates: start: 20200312, end: 20200505
  18. CAYSTON [Suspect]
     Active Substance: AZTREONAM
     Indication: PRODUCT USED FOR UNKNOWN INDICATION
     Route: 065
  19. PULMOZYME [Concomitant]
     Active Substance: DORNASE ALFA
  20. LISINOPRIL. [Concomitant]
     Active Substance: LISINOPRIL
  21. GLUCAGON. [Concomitant]
     Active Substance: GLUCAGON
  22. PROMETHAZINE [Concomitant]
     Active Substance: PROMETHAZINE HYDROCHLORIDE
  23. VITAMIN D3 [Concomitant]
     Active Substance: CHOLECALCIFEROL
  24. OMEPRAZOLE. [Concomitant]
     Active Substance: OMEPRAZOLE
  25. IPRATROPIUM BROMIDE/ALBUTEROL SULFATE [Concomitant]
     Active Substance: ALBUTEROL SULFATE\IPRATROPIUM BROMIDE
  26. DOCUSATE [Concomitant]
     Active Substance: DOCUSATE
  27. INSULIN [Concomitant]
     Active Substance: INSULIN NOS
     Dosage: REDUCED DOSE

REACTIONS (15)
  - Upper-airway cough syndrome [Recovering/Resolving]
  - Disturbance in attention [Not Recovered/Not Resolved]
  - Hypoglycaemia [Unknown]
  - Headache [Recovered/Resolved]
  - Abdominal pain upper [Recovered/Resolved]
  - Dyspnoea [Recovering/Resolving]
  - Sinusitis [Unknown]
  - Ageusia [Recovering/Resolving]
  - Nasal congestion [Recovering/Resolving]
  - Chest discomfort [Not Recovered/Not Resolved]
  - Respiratory tract congestion [Recovering/Resolving]
  - Hypersensitivity [Recovering/Resolving]
  - Insomnia [Recovered/Resolved]
  - Sinus headache [Recovering/Resolving]
  - Fatigue [Recovering/Resolving]

NARRATIVE: CASE EVENT DATE: 20200130
